FAERS Safety Report 19188504 (Version 1)
Quarter: 2021Q2

REPORT INFORMATION
  Report Type: Spontaneous
  Country: US (occurrence: US)
  Receive Date: 20210427
  Receipt Date: 20210427
  Transmission Date: 20210717
  Serious: Yes (Other)
  Sender: FDA-Public Use
  Company Number: US-ROCHE-2817521

PATIENT
  Sex: Female

DRUGS (20)
  1. ACTEMRA [Suspect]
     Active Substance: TOCILIZUMAB
  2. VICTOZA [Concomitant]
     Active Substance: LIRAGLUTIDE
  3. MAGNESIUM [Concomitant]
     Active Substance: MAGNESIUM
  4. PREMARIN [Concomitant]
     Active Substance: ESTROGENS, CONJUGATED
  5. MONTELUKAST [Concomitant]
     Active Substance: MONTELUKAST SODIUM
  6. APIDRA [Concomitant]
     Active Substance: INSULIN GLULISINE
  7. BIOTIN [Concomitant]
     Active Substance: BIOTIN
     Dosage: 10000 MCG
  8. TIZANIDINE. [Concomitant]
     Active Substance: TIZANIDINE
  9. ZOLPIDEM [Concomitant]
     Active Substance: ZOLPIDEM TARTRATE
  10. ONDASETRON [Concomitant]
     Active Substance: ONDANSETRON
  11. ACTEMRA [Suspect]
     Active Substance: TOCILIZUMAB
  12. HYDROCODONE [Concomitant]
     Active Substance: HYDROCODONE
  13. LANTUS [Concomitant]
     Active Substance: INSULIN GLARGINE
  14. SOLOSTAR INSULIN (UNK INGREDIENTS) [Concomitant]
  15. VOLTARENE [Concomitant]
  16. ACTEMRA [Suspect]
     Active Substance: TOCILIZUMAB
     Indication: RHEUMATOID ARTHRITIS
     Route: 058
  17. ALPRAZOLAM. [Concomitant]
     Active Substance: ALPRAZOLAM
  18. METOPROLOL. [Concomitant]
     Active Substance: METOPROLOL
  19. LEVOTHYROXINE. [Concomitant]
     Active Substance: LEVOTHYROXINE
  20. RIZATRIPTAN. [Concomitant]
     Active Substance: RIZATRIPTAN

REACTIONS (3)
  - Renal failure [Unknown]
  - Diabetes mellitus [Unknown]
  - Cardiac failure congestive [Unknown]
